FAERS Safety Report 25784756 (Version 5)
Quarter: 2025Q4

REPORT INFORMATION
  Report Type: Report from Study
  Country: US (occurrence: US)
  Receive Date: 20250910
  Receipt Date: 20251212
  Transmission Date: 20260117
  Serious: Yes (Other)
  Sender: TEVA
  Company Number: US-TEVA-VS-3370607

PATIENT
  Age: 28 Year
  Sex: Female

DRUGS (2)
  1. CLARAVIS [Suspect]
     Active Substance: ISOTRETINOIN
     Indication: Product used for unknown indication
     Dosage: AVERAGE DAILY DOSE: 30 MG
     Route: 065
     Dates: start: 20250601, end: 20250801
  2. CLARAVIS [Suspect]
     Active Substance: ISOTRETINOIN
     Indication: Product used for unknown indication
     Dosage: AVERAGE DAILY DOSE: 30 MG
     Route: 065
     Dates: start: 20250601, end: 20250801

REACTIONS (3)
  - Unintended pregnancy [Unknown]
  - Mean cell haemoglobin decreased [Unknown]
  - Vaginal haemorrhage [Unknown]

NARRATIVE: CASE EVENT DATE: 20250101
